FAERS Safety Report 13285272 (Version 1)
Quarter: 2017Q1

REPORT INFORMATION
  Report Type: Spontaneous
  Country: US (occurrence: US)
  Receive Date: 20170301
  Receipt Date: 20170301
  Transmission Date: 20170428
  Serious: Yes (Hospitalization, Other)
  Sender: FDA-Public Use
  Company Number: None

PATIENT
  Age: 45 Year
  Sex: Male
  Weight: 105.7 kg

DRUGS (3)
  1. CELESTONE [Suspect]
     Active Substance: BETAMETHASONE
     Indication: BACK PAIN
     Route: 008
  2. DEPO-MEDROL [Suspect]
     Active Substance: METHYLPREDNISOLONE ACETATE
     Dosage: QUANITY 2 80MG
     Route: 008
     Dates: start: 20170223, end: 20170223
  3. LIDOCAINE/MARCAINE [Suspect]
     Active Substance: BUPIVACAINE\LIDOCAINE
     Dosage: ?          QUANTITY:2 80MG;?

REACTIONS (12)
  - Movement disorder [None]
  - Monoplegia [None]
  - Inappropriate schedule of drug administration [None]
  - Arthralgia [None]
  - Pain in extremity [None]
  - Paraesthesia [None]
  - Overdose [None]
  - Drug administration error [None]
  - Dysstasia [None]
  - Multiple injuries [None]
  - Nerve injury [None]
  - Fear [None]

NARRATIVE: CASE EVENT DATE: 20170223
